FAERS Safety Report 10835206 (Version 1)
Quarter: 2015Q1

REPORT INFORMATION
  Report Type: Spontaneous
  Country: US (occurrence: US)
  Receive Date: 20150219
  Receipt Date: 20150219
  Transmission Date: 20150721
  Serious: Yes (Death, Other)
  Sender: FDA-Public Use
  Company Number: US-CELGENE-USA-2015022382

PATIENT

DRUGS (6)
  1. ISTODAX [Suspect]
     Active Substance: ROMIDEPSIN
     Dosage: 20MG AND 10MG/M2
     Route: 041
  2. ISTODAX [Suspect]
     Active Substance: ROMIDEPSIN
     Indication: LYMPHOMA
     Dosage: 20MG AND 8MG/M2
     Route: 041
  3. ISTODAX [Suspect]
     Active Substance: ROMIDEPSIN
     Dosage: 40MG AND 14MG/M2
     Route: 041
  4. ISTODAX [Suspect]
     Active Substance: ROMIDEPSIN
     Dosage: 40MG AND 10MG/M2
     Route: 041
  5. ISTODAX [Suspect]
     Active Substance: ROMIDEPSIN
     Dosage: 40MG AND 12MG/M2
     Route: 041
  6. ALISERTIB [Suspect]
     Active Substance: ALISERTIB
     Indication: LYMPHOMA
     Route: 048

REACTIONS (4)
  - Lymphoma [Fatal]
  - Thrombocytopenia [Unknown]
  - Neutropenia [Unknown]
  - Anaemia [Unknown]
